FAERS Safety Report 12262486 (Version 1)
Quarter: 2016Q2

REPORT INFORMATION
  Report Type: Spontaneous
  Country: US (occurrence: None)
  Receive Date: 20160412
  Receipt Date: 20160412
  Transmission Date: 20160815
  Serious: No
  Sender: FDA-Public Use
  Company Number: None

PATIENT
  Age: 77 Year
  Sex: Male

DRUGS (18)
  1. JADENU [Suspect]
     Active Substance: DEFERASIROX
     Indication: IRON METABOLISM DISORDER
     Route: 048
     Dates: start: 20160209
  2. PROMETH/COD [Concomitant]
  3. DANAZOL. [Concomitant]
     Active Substance: DANAZOL
  4. GABAPENTIN. [Concomitant]
     Active Substance: GABAPENTIN
  5. SMZ/TMP [Concomitant]
     Active Substance: SULFAMETHOXAZOLE\TRIMETHOPRIM
  6. CLOTRIMAZOLE. [Concomitant]
     Active Substance: CLOTRIMAZOLE
  7. BREATHERITE [Concomitant]
  8. AZITHROMYCIN ANHYDROUS. [Concomitant]
     Active Substance: AZITHROMYCIN ANHYDROUS
  9. PROMETHAZINE [Concomitant]
     Active Substance: PROMETHAZINE\PROMETHAZINE HYDROCHLORIDE
  10. HYDROCO/APAP [Concomitant]
     Active Substance: ACETAMINOPHEN\HYDROCODONE
  11. PREDNISONE. [Concomitant]
     Active Substance: PREDNISONE
  12. LEVOFLOXACIN. [Concomitant]
     Active Substance: LEVOFLOXACIN
  13. FLUTICASONE [Concomitant]
     Active Substance: FLUTICASONE\FLUTICASONE PROPIONATE
  14. PRAMIPEXOLE. [Concomitant]
     Active Substance: PRAMIPEXOLE
  15. VENTOLIN [Concomitant]
     Active Substance: ALBUTEROL SULFATE
  16. BENZONATATE. [Concomitant]
     Active Substance: BENZONATATE
  17. PROAIR HFA [Concomitant]
     Active Substance: ALBUTEROL SULFATE
  18. CEPHALEXIN. [Concomitant]
     Active Substance: CEPHALEXIN

REACTIONS (3)
  - Peripheral swelling [None]
  - Erythema [None]
  - Joint swelling [None]

NARRATIVE: CASE EVENT DATE: 201603
